FAERS Safety Report 17096863 (Version 2)
Quarter: 2019Q4

REPORT INFORMATION
  Report Type: Spontaneous
  Country: US (occurrence: US)
  Receive Date: 20191202
  Receipt Date: 20191210
  Transmission Date: 20200122
  Serious: Yes (Hospitalization, Other)
  Sender: FDA-Public Use
  Company Number: US-AMGEN-USASP2019199388

PATIENT
  Age: 82 Year
  Sex: Male

DRUGS (9)
  1. PROCRIT [Suspect]
     Active Substance: ERYTHROPOIETIN
     Dosage: UNK,60000
     Route: 065
     Dates: start: 20190708
  2. KEYTRUDA [Concomitant]
     Active Substance: PEMBROLIZUMAB
     Dosage: UNK
     Dates: start: 20191021
  3. PROCRIT [Suspect]
     Active Substance: ERYTHROPOIETIN
     Indication: ANAEMIA
     Dosage: UNK,40000
     Route: 065
     Dates: start: 20190507
  4. ASPIRIN [ACETYLSALICYLIC ACID] [Concomitant]
     Active Substance: ASPIRIN
  5. FERAHEME [Concomitant]
     Active Substance: FERUMOXYTOL NON-STOICHIOMETRIC MAGNETITE
     Dosage: UNK
     Dates: end: 20190506
  6. AXITINIB [Concomitant]
     Active Substance: AXITINIB
     Dosage: UNK, TAKE I PO (PER ORAL) DAILY IF TOLERATED WILL INCREASE TO I PO Q 12 HOURS ON DAY 15
     Dates: start: 201910
  7. PROCRIT [Suspect]
     Active Substance: ERYTHROPOIETIN
     Dosage: UNK,80000
     Route: 065
     Dates: start: 20190820
  8. ELIQUIS [Concomitant]
     Active Substance: APIXABAN
     Indication: ATRIAL FIBRILLATION
     Dosage: UNK
  9. ARANESP [Suspect]
     Active Substance: DARBEPOETIN ALFA
     Indication: NEPHROGENIC ANAEMIA
     Dosage: UNK
     Route: 065

REACTIONS (10)
  - Abdominal pain [Unknown]
  - Metastatic renal cell carcinoma [Unknown]
  - Bone cyst [Unknown]
  - Pleural effusion [Unknown]
  - Myelodysplastic syndrome [Unknown]
  - Constipation [Unknown]
  - Malnutrition [Unknown]
  - Cardiac failure congestive [Unknown]
  - Treatment failure [Unknown]
  - Hypertensive heart disease [Unknown]

NARRATIVE: CASE EVENT DATE: 20191104
